FAERS Safety Report 4394176-2 (Version None)
Quarter: 2004Q3

REPORT INFORMATION
  Report Type: 
  Country: None (occurrence: None)
  Receive Date: 20040707
  Receipt Date: 20040624
  Transmission Date: 20050211
  Serious: Yes (Other)
  Sender: FDA-Public Use
  Company Number: S04-USA-03697-01

PATIENT
  Age: 42 Year
  Sex: Male
  Weight: 63.05 kg

DRUGS (6)
  1. LEXAPRO [Suspect]
     Indication: PANIC DISORDER WITH AGORAPHOBIA
     Dosage: 10 MG QD PO
     Route: 048
     Dates: start: 20040122, end: 20040520
  2. DIOVAN HCT [Concomitant]
  3. ALPRAZOLAM [Concomitant]
  4. WELLBUTRIN [Concomitant]
  5. VIAGRA [Concomitant]
  6. TOPROL-XL [Concomitant]

REACTIONS (3)
  - ASPARTATE AMINOTRANSFERASE INCREASED [None]
  - BLOOD CHOLESTEROL INCREASED [None]
  - BLOOD TRIGLYCERIDES INCREASED [None]
